FAERS Safety Report 17946995 (Version 1)
Quarter: 2020Q2

REPORT INFORMATION
  Report Type: Spontaneous
  Country: US (occurrence: US)
  Receive Date: 20200625
  Receipt Date: 20200625
  Transmission Date: 20200714
  Serious: Yes (Other)
  Sender: FDA-Public Use
  Company Number: None

PATIENT
  Age: 26 Year
  Sex: Male

DRUGS (1)
  1. PHENYTOIN100MG [Suspect]
     Active Substance: PHENYTOIN SODIUM
     Indication: EPILEPSY
     Dosage: ?          OTHER FREQUENCY:5 CAPS/NIGHT;?
     Route: 048
     Dates: end: 2001

REACTIONS (1)
  - Seizure [None]

NARRATIVE: CASE EVENT DATE: 2001
